FAERS Safety Report 8595193-9 (Version None)
Quarter: 2012Q3

REPORT INFORMATION
  Report Type: 
  Country: None (occurrence: None)
  Receive Date: 20120815
  Receipt Date: 20120810
  Transmission Date: 20120928
  Serious: Yes (Disabling)
  Sender: FDA-Public Use
  Company Number: US-SANOFI-AVENTIS-2012SA058022

PATIENT
  Sex: Female

DRUGS (3)
  1. OPTICLICK [Suspect]
     Indication: DIABETES MELLITUS
     Dates: start: 20061001
  2. SOLOSTAR [Suspect]
     Indication: DIABETES MELLITUS
  3. LANTUS SOLOSTAR [Suspect]
     Indication: DIABETES MELLITUS
     Dosage: IN AM DOSE:45 UNIT(S)
     Route: 058

REACTIONS (2)
  - TOE AMPUTATION [None]
  - LEG AMPUTATION [None]
